FAERS Safety Report 7151108-1 (Version None)
Quarter: 2010Q4

REPORT INFORMATION
  Report Type: 
  Country: None (occurrence: None)
  Receive Date: 20101123
  Receipt Date: 20101103
  Transmission Date: 20110411
  Serious: Yes (Hospitalization)
  Sender: FDA-Public Use
  Company Number: 2010SP056341

PATIENT
  Age: 32 Year
  Sex: Female

DRUGS (2)
  1. CELESTONE [Suspect]
     Indication: MATERNAL THERAPY TO ENHANCE FOETAL LUNG MATURITY
     Dosage: 12 MG;ONCE; 12 MG;ONCE
     Dates: start: 20100916, end: 20100916
  2. CELESTONE [Suspect]
     Indication: MATERNAL THERAPY TO ENHANCE FOETAL LUNG MATURITY
     Dosage: 12 MG;ONCE; 12 MG;ONCE
     Dates: start: 20100916

REACTIONS (1)
  - UTERINE CONTRACTIONS ABNORMAL [None]
